FAERS Safety Report 4800231-2 (Version None)
Quarter: 2005Q4

REPORT INFORMATION
  Report Type: 
  Country: None (occurrence: None)
  Receive Date: 20051017
  Receipt Date: 20050309
  Transmission Date: 20060501
  Serious: No
  Sender: FDA-Public Use
  Company Number: US-GLAXOSMITHKLINE-A0549032A

PATIENT
  Sex: Male

DRUGS (2)
  1. CEFTIN [Suspect]
     Indication: DRUG USE FOR UNKNOWN INDICATION
     Dosage: 250MG UNKNOWN
     Route: 048
     Dates: start: 20050216, end: 20050226
  2. DEXTROMETHORPHAN HYDROBROMIDE [Concomitant]

REACTIONS (1)
  - DRUG SCREEN POSITIVE [None]
